FAERS Safety Report 24727847 (Version 2)
Quarter: 2024Q4

REPORT INFORMATION
  Report Type: Spontaneous
  Country: JP (occurrence: JP)
  Receive Date: 20241212
  Receipt Date: 20241217
  Transmission Date: 20250114
  Serious: Yes (Other)
  Sender: AMGEN
  Company Number: JP-AMGEN-JPNSP2024209339

PATIENT
  Sex: Male

DRUGS (5)
  1. BLINCYTO [Suspect]
     Active Substance: BLINATUMOMAB
     Indication: B precursor type acute leukaemia
     Dosage: 9 MICROGRAM (AS PER THE PACKAGE INSERT) DRIP INFUSION
     Route: 040
     Dates: start: 20241015, end: 20241015
  2. BLINCYTO [Suspect]
     Active Substance: BLINATUMOMAB
     Dosage: UNK, RESUME AGAIN
     Route: 040
     Dates: start: 20241016, end: 20241016
  3. BLINCYTO [Suspect]
     Active Substance: BLINATUMOMAB
     Dosage: UNK, RESUME AGAIN
     Route: 040
     Dates: start: 20241017, end: 202410
  4. BLINCYTO [Suspect]
     Active Substance: BLINATUMOMAB
     Dosage: 28 MICROGRAM, QD, DRIP INFUSION
     Route: 040
     Dates: start: 202410, end: 20241104
  5. BLINCYTO [Suspect]
     Active Substance: BLINATUMOMAB
     Dosage: 28 MICROGRAM/AS PER THE PACKAGE INSERT, DRIP INFUSION
     Route: 040
     Dates: start: 20241126, end: 20241204

REACTIONS (2)
  - B precursor type acute leukaemia [Unknown]
  - Cytokine release syndrome [Unknown]

NARRATIVE: CASE EVENT DATE: 20241015
